FAERS Safety Report 24379488 (Version 1)
Quarter: 2024Q3

REPORT INFORMATION
  Report Type: Spontaneous
  Country: US (occurrence: US)
  Receive Date: 20240930
  Receipt Date: 20240930
  Transmission Date: 20241016
  Serious: No
  Sender: Thea Pharma
  Company Number: US-THEA-2024001123

PATIENT
  Sex: Female

DRUGS (4)
  1. IYUZEH [Suspect]
     Active Substance: LATANOPROST
     Indication: Intraocular pressure increased
     Dosage: IN EACH EACH EVENING
     Route: 047
     Dates: start: 20240506
  2. AMLODIPINE BESYLATE\BENAZEPRIL HYDROCHLORIDE [Concomitant]
     Active Substance: AMLODIPINE BESYLATE\BENAZEPRIL HYDROCHLORIDE
     Indication: Product used for unknown indication
  3. ATORVASTATIN CALCIUM [Concomitant]
     Active Substance: ATORVASTATIN CALCIUM
     Indication: Product used for unknown indication
  4. SOLOSTAR [Concomitant]
     Active Substance: DEVICE
     Indication: Product used for unknown indication

REACTIONS (13)
  - Eye pain [Not Recovered/Not Resolved]
  - Visual impairment [Not Recovered/Not Resolved]
  - Vision blurred [Not Recovered/Not Resolved]
  - Eye pruritus [Not Recovered/Not Resolved]
  - Dry eye [Not Recovered/Not Resolved]
  - Ocular hyperaemia [Not Recovered/Not Resolved]
  - Eye swelling [Not Recovered/Not Resolved]
  - Epigastric discomfort [Recovered/Resolved with Sequelae]
  - Glassy eyes [Not Recovered/Not Resolved]
  - Lacrimation increased [Not Recovered/Not Resolved]
  - Fatigue [Not Recovered/Not Resolved]
  - COVID-19 [Unknown]
  - Heart rate increased [Unknown]

NARRATIVE: CASE EVENT DATE: 20240501
